FAERS Safety Report 10785504 (Version 1)
Quarter: 2015Q1

REPORT INFORMATION
  Report Type: Report from Study
  Country: US (occurrence: US)
  Receive Date: 20150211
  Receipt Date: 20150211
  Transmission Date: 20150721
  Serious: Yes (Other)
  Sender: FDA-Public Use
  Company Number: US-BAYER-2014-185096

PATIENT
  Age: 47 Year
  Sex: Female

DRUGS (3)
  1. BETASERON [Suspect]
     Active Substance: INTERFERON BETA-1B
     Indication: MULTIPLE SCLEROSIS
     Dosage: 6 MIU, QOD
     Route: 058
     Dates: start: 20141103
  2. ADVIL [Concomitant]
     Active Substance: IBUPROFEN
  3. BETASERON [Suspect]
     Active Substance: INTERFERON BETA-1B
     Indication: MULTIPLE SCLEROSIS
     Dosage: 8 MIU, UNK
     Route: 058
     Dates: end: 20150102

REACTIONS (8)
  - Hypoaesthesia [None]
  - Multiple sclerosis [None]
  - Limb discomfort [None]
  - Gait disturbance [None]
  - Fatigue [None]
  - Paraesthesia [None]
  - Hot flush [Not Recovered/Not Resolved]
  - Feeling abnormal [None]

NARRATIVE: CASE EVENT DATE: 20141103
